FAERS Safety Report 4899720-4 (Version None)
Quarter: 2006Q1

REPORT INFORMATION
  Report Type: 
  Country: None (occurrence: None)
  Receive Date: 20060131
  Receipt Date: 20060117
  Transmission Date: 20060701
  Serious: Yes (Hospitalization)
  Sender: FDA-Public Use
  Company Number: 220437

PATIENT
  Age: 54 Year
  Sex: Male

DRUGS (3)
  1. RAPTIVA [Suspect]
     Indication: PSORIASIS
     Dosage: 100 MG, 1/WEEK, SUBCUTANEOUS, 100 MG 1/WEEK; SUBCUTANEOUS
     Route: 058
     Dates: start: 20041001, end: 20050101
  2. RAPTIVA [Suspect]
     Indication: PSORIASIS
     Dosage: 100 MG, 1/WEEK, SUBCUTANEOUS, 100 MG 1/WEEK; SUBCUTANEOUS
     Route: 058
     Dates: start: 20050901, end: 20051101
  3. METHOTREXATE [Concomitant]

REACTIONS (5)
  - CASTLEMAN'S DISEASE [None]
  - CONDITION AGGRAVATED [None]
  - PROTEIN S DEFICIENCY [None]
  - RASH PAPULAR [None]
  - TRANSIENT ISCHAEMIC ATTACK [None]
